FAERS Safety Report 19140931 (Version 1)
Quarter: 2021Q2

REPORT INFORMATION
  Report Type: Spontaneous
  Country: US (occurrence: US)
  Receive Date: 20210415
  Receipt Date: 20210415
  Transmission Date: 20210717
  Serious: No
  Sender: FDA-Public Use
  Company Number: US-TERSERA THERAPEUTICS LLC-2021TRS000704

PATIENT

DRUGS (2)
  1. XERMELO [Suspect]
     Active Substance: TELOTRISTAT ETHYL
     Indication: CARCINOID TUMOUR
     Dosage: 250 MG, TID
     Route: 048
     Dates: start: 20210201
  2. XERMELO [Suspect]
     Active Substance: TELOTRISTAT ETHYL
     Dosage: 250 MG, BID
     Route: 048

REACTIONS (7)
  - Constipation [Recovered/Resolved]
  - Abdominal pain upper [Recovered/Resolved]
  - Dizziness [Unknown]
  - Eye pruritus [Recovered/Resolved]
  - Flatulence [Recovered/Resolved]
  - Inappropriate schedule of product administration [Unknown]
  - Headache [Recovered/Resolved]
